FAERS Safety Report 24119731 (Version 1)
Quarter: 2024Q3

REPORT INFORMATION
  Report Type: Spontaneous
  Country: CN (occurrence: CN)
  Receive Date: 20240722
  Receipt Date: 20240722
  Transmission Date: 20241017
  Serious: Yes (Life-Threatening)
  Sender: BAYER
  Company Number: CN-BAYER-2024A105684

PATIENT
  Age: 20 Year
  Sex: Female

DRUGS (2)
  1. ULTRAVIST [Suspect]
     Active Substance: IOPROMIDE
     Indication: Computerised tomogram intestine
     Dosage: UNK
     Dates: start: 20240718, end: 20240718
  2. ULTRAVIST [Suspect]
     Active Substance: IOPROMIDE
     Indication: Computerised tomogram intestine
     Dosage: UNK
     Dates: start: 20240718, end: 20240718

REACTIONS (5)
  - Contrast media allergy [None]
  - Swelling of eyelid [None]
  - Dyspnoea [None]
  - Laryngeal oedema [None]
  - Rash [None]

NARRATIVE: CASE EVENT DATE: 20240718
